FAERS Safety Report 23241771 (Version 4)
Quarter: 2024Q3

REPORT INFORMATION
  Report Type: Spontaneous
  Country: US (occurrence: US)
  Receive Date: 20231129
  Receipt Date: 20240912
  Transmission Date: 20241016
  Serious: Yes (Hospitalization, Other)
  Sender: AGIOS PHARMACEUTICALS
  Company Number: US-AGIOS-2311US03526

PATIENT
  Age: 29 Year
  Sex: Male

DRUGS (2)
  1. PYRUKYND [Suspect]
     Active Substance: MITAPIVAT
     Indication: Pyruvate kinase deficiency anaemia
     Dosage: UNK
     Route: 065
     Dates: start: 20220919
  2. PYRUKYND [Suspect]
     Active Substance: MITAPIVAT
     Dosage: 50 MILLIGRAM, BID
     Route: 065
     Dates: start: 20230615

REACTIONS (19)
  - Drug-induced liver injury [Not Recovered/Not Resolved]
  - Hepatic cirrhosis [Unknown]
  - Nausea [Unknown]
  - Vomiting [Unknown]
  - Diarrhoea [Unknown]
  - Dyspnoea [Unknown]
  - Dizziness [Unknown]
  - Dehydration [Unknown]
  - Pulmonary hypertension [Unknown]
  - Portal hypertension [Unknown]
  - Restrictive cardiomyopathy [Unknown]
  - Cardiogenic shock [Unknown]
  - Cardiac failure [Unknown]
  - Iron overload [Unknown]
  - Abdominal lymphadenopathy [Unknown]
  - Asthenia [Unknown]
  - Ocular icterus [Unknown]
  - Haemoglobin decreased [Unknown]
  - Drug ineffective [Unknown]

NARRATIVE: CASE EVENT DATE: 20230824
